FAERS Safety Report 8510415-8 (Version None)
Quarter: 2012Q3

REPORT INFORMATION
  Report Type: 
  Country: None (occurrence: None)
  Receive Date: 20120714
  Receipt Date: 20120705
  Transmission Date: 20120928
  Serious: No
  Sender: FDA-Public Use
  Company Number: US-009507513-1207USA002150

PATIENT

DRUGS (2)
  1. SIMVASTATIN [Suspect]
     Route: 048
  2. VESICARE [Suspect]
     Dosage: 5 MG, QD
     Route: 048
     Dates: start: 20110612

REACTIONS (3)
  - DRUG INEFFECTIVE [None]
  - MUSCULAR WEAKNESS [None]
  - MYALGIA [None]
